FAERS Safety Report 8902357 (Version 2)
Quarter: 2013Q3

REPORT INFORMATION
  Report Type: Spontaneous
  Country: US (occurrence: US)
  Receive Date: 20121112
  Receipt Date: 20130813
  Transmission Date: 20140515
  Serious: Yes (Death)
  Sender: FDA-Public Use
  Company Number: US-INCYTE CORPORATION-2012IN002271

PATIENT
  Age: 67 Year
  Sex: Male

DRUGS (3)
  1. JAKAFI [Suspect]
     Indication: MYELOFIBROSIS
     Dosage: 15 MG, BID
     Route: 048
     Dates: start: 20120919
  2. JAKAFI [Suspect]
     Dosage: 10 MG, BID
     Route: 048
  3. INTERFERON [Concomitant]

REACTIONS (1)
  - Death [Fatal]
